FAERS Safety Report 25536690 (Version 3)
Quarter: 2025Q3

REPORT INFORMATION
  Report Type: Spontaneous
  Country: EU (occurrence: EU)
  Receive Date: 20250709
  Receipt Date: 20250729
  Transmission Date: 20251021
  Serious: Yes (Other)
  Sender: SANDOZ
  Company Number: EU-BIOCON BIOLOGICS LIMITED-BBL2025003335

PATIENT
  Age: 85 Year
  Sex: Male

DRUGS (11)
  1. ADALIMUMAB [Suspect]
     Active Substance: ADALIMUMAB
     Indication: Erythrodermic psoriasis
     Dosage: 40 MG, Q2W
     Route: 058
     Dates: start: 2021
  2. ACITRETIN [Suspect]
     Active Substance: ACITRETIN
     Indication: Psoriasis
     Route: 048
  3. DAPSONE [Concomitant]
     Active Substance: DAPSONE
     Indication: Pemphigoid
     Dosage: 100 MG, QD
     Route: 065
     Dates: start: 202206
  4. DAPSONE [Concomitant]
     Active Substance: DAPSONE
     Dosage: 50 MG, QD
     Route: 065
     Dates: start: 202311
  5. DAPSONE [Concomitant]
     Active Substance: DAPSONE
     Dosage: 50 MG, QD
     Route: 065
     Dates: start: 202405
  6. METHOTREXATE [Concomitant]
     Active Substance: METHOTREXATE
     Indication: Psoriasis
     Route: 065
  7. OMALIZUMAB [Concomitant]
     Active Substance: OMALIZUMAB
     Indication: Pemphigoid
     Dosage: 300 MG, Q4W
     Route: 058
  8. PREDNISONE [Concomitant]
     Active Substance: PREDNISONE
     Dosage: 10 MG, QD, LOW DOSE PREDNISONE
     Route: 048
     Dates: start: 202405
  9. PREDNISONE [Concomitant]
     Active Substance: PREDNISONE
     Indication: Pemphigoid
     Dosage: 30 MG, QD
     Route: 048
     Dates: start: 2022
  10. PREDNISONE [Concomitant]
     Active Substance: PREDNISONE
     Dosage: 5 MG, QD
     Route: 048
     Dates: start: 202401
  11. RISANKIZUMAB [Concomitant]
     Active Substance: RISANKIZUMAB
     Indication: Psoriasis
     Route: 058
     Dates: start: 202303

REACTIONS (4)
  - Pemphigoid [Recovered/Resolved]
  - Gastrointestinal disorder [Unknown]
  - Drug intolerance [Unknown]
  - Off label use [Unknown]

NARRATIVE: CASE EVENT DATE: 20220501
